FAERS Safety Report 4694856-5 (Version None)
Quarter: 2005Q2

REPORT INFORMATION
  Report Type: 
  Country: None (occurrence: None)
  Receive Date: 20050620
  Receipt Date: 20050328
  Transmission Date: 20051028
  Serious: Yes (Other)
  Sender: FDA-Public Use
  Company Number: US-BRISTOL-MYERS SQUIBB COMPANY-12912457

PATIENT
  Age: 69 Year
  Sex: Male

DRUGS (9)
  1. KENALOG-40 [Suspect]
     Route: 031
     Dates: start: 20050207, end: 20050207
  2. VISUDYNE [Suspect]
     Route: 042
     Dates: start: 20050207, end: 20050207
  3. RANITIDINE [Concomitant]
     Dates: start: 20000101
  4. PREVACID [Concomitant]
     Dates: start: 20000101
  5. LIPITOR [Concomitant]
     Dates: start: 19970101
  6. ALLOPURINOL [Concomitant]
     Dates: start: 19970101
  7. FLONASE [Concomitant]
     Dates: start: 19970101
  8. PULMICORT [Concomitant]
     Dates: start: 19970101
  9. MULTI-VITAMINS [Concomitant]
     Dates: start: 20010101

REACTIONS (1)
  - RETINAL HAEMORRHAGE [None]
